FAERS Safety Report 12048655 (Version 2)
Quarter: 2016Q1

REPORT INFORMATION
  Report Type: Spontaneous
  Country: BR (occurrence: BR)
  Receive Date: 20160208
  Receipt Date: 20160222
  Transmission Date: 20160526
  Serious: Yes (Hospitalization, Other)
  Sender: FDA-Public Use
  Company Number: BR-SA-2016SA020755

PATIENT
  Sex: Female

DRUGS (1)
  1. LANTUS [Suspect]
     Active Substance: INSULIN GLARGINE
     Dosage: AMPOULE
     Route: 065

REACTIONS (5)
  - Renal disorder [Unknown]
  - Renal failure [Unknown]
  - Oxygen supplementation [Unknown]
  - Discomfort [Recovering/Resolving]
  - Dyspnoea [Recovering/Resolving]
